FAERS Safety Report 11911833 (Version 1)
Quarter: 2016Q1

REPORT INFORMATION
  Report Type: Spontaneous
  Country: US (occurrence: US)
  Receive Date: 20160112
  Receipt Date: 20160112
  Transmission Date: 20160526
  Serious: No
  Sender: FDA-Public Use
  Company Number: US-WATSON-2015-16085

PATIENT
  Age: 67 Year
  Sex: Female

DRUGS (2)
  1. MICONAZOLE NITRATE (AMALLC) [Suspect]
     Active Substance: MICONAZOLE NITRATE
     Indication: PRURITUS
     Dosage: UNK, BID
     Route: 065
  2. MICONAZOLE NITRATE (AMALLC) [Suspect]
     Active Substance: MICONAZOLE NITRATE
     Indication: PRURITUS
     Dosage: UNK UNK, 3 SUPPOSITORIES
     Route: 067

REACTIONS (1)
  - Drug ineffective [Unknown]
